FAERS Safety Report 18396386 (Version 2)
Quarter: 2020Q4

REPORT INFORMATION
  Report Type: Other
  Country: DE (occurrence: DE)
  Receive Date: 20201019
  Receipt Date: 20201203
  Transmission Date: 20210114
  Serious: No
  Sender: FDA-Public Use
  Company Number: DE-ROCHE-2330193

PATIENT
  Age: 52 Year
  Sex: Male

DRUGS (6)
  1. OCREVUS [Suspect]
     Active Substance: OCRELIZUMAB
     Indication: RELAPSING-REMITTING MULTIPLE SCLEROSIS
     Route: 042
     Dates: start: 20190819
  2. PHENPROGAMMA [Concomitant]
     Active Substance: PHENPROCOUMON
  3. ATORVASTATIN [Concomitant]
     Active Substance: ATORVASTATIN
  4. BISOPROLOL [Concomitant]
     Active Substance: BISOPROLOL
  5. OCREVUS [Suspect]
     Active Substance: OCRELIZUMAB
     Route: 042
     Dates: start: 20190902
  6. OCREVUS [Suspect]
     Active Substance: OCRELIZUMAB
     Route: 042
     Dates: start: 20200926

REACTIONS (19)
  - Fatigue [Recovered/Resolved]
  - Tongue eruption [Recovered/Resolved]
  - Fall [Unknown]
  - Throat irritation [Recovered/Resolved]
  - Drug ineffective [Unknown]
  - Asthenia [Recovered/Resolved]
  - Infection susceptibility increased [Recovered/Resolved]
  - Somnolence [Recovered/Resolved]
  - Tongue discomfort [Recovered/Resolved]
  - Insomnia [Recovered/Resolved]
  - Pharyngeal inflammation [Recovered/Resolved]
  - Body temperature increased [Recovered/Resolved]
  - Nasopharyngitis [Recovered/Resolved]
  - Muscular weakness [Recovered/Resolved]
  - Headache [Recovered/Resolved]
  - Hot flush [Recovered/Resolved]
  - Sinus pain [Recovered/Resolved]
  - Haematoma [Recovering/Resolving]
  - Contusion [Recovered/Resolved]

NARRATIVE: CASE EVENT DATE: 20190819
